FAERS Safety Report 23135472 (Version 3)
Quarter: 2023Q4

REPORT INFORMATION
  Report Type: Report from Study
  Country: US (occurrence: US)
  Receive Date: 20231101
  Receipt Date: 20231226
  Transmission Date: 20240109
  Serious: Yes (Other)
  Sender: FDA-Public Use
  Company Number: US-ABBVIE-5474175

PATIENT
  Sex: Female

DRUGS (1)
  1. RINVOQ [Suspect]
     Active Substance: UPADACITINIB
     Indication: Psoriatic arthropathy
     Route: 048
     Dates: start: 20230627, end: 20231013

REACTIONS (14)
  - Visual impairment [Unknown]
  - Rhinorrhoea [Not Recovered/Not Resolved]
  - Herpes simplex [Not Recovered/Not Resolved]
  - Cold sweat [Not Recovered/Not Resolved]
  - Stomatitis [Unknown]
  - Headache [Not Recovered/Not Resolved]
  - Diarrhoea [Not Recovered/Not Resolved]
  - Night sweats [Unknown]
  - Proctalgia [Unknown]
  - Vomiting [Not Recovered/Not Resolved]
  - Nausea [Not Recovered/Not Resolved]
  - Cheilitis [Unknown]
  - Haemorrhagic diathesis [Unknown]
  - Haematochezia [Not Recovered/Not Resolved]

NARRATIVE: CASE EVENT DATE: 20230101
